FAERS Safety Report 18971289 (Version 2)
Quarter: 2021Q1

REPORT INFORMATION
  Report Type: Spontaneous
  Country: US (occurrence: US)
  Receive Date: 20210305
  Receipt Date: 20210310
  Transmission Date: 20210420
  Serious: No
  Sender: FDA-Public Use
  Company Number: US-SA-2021SA073810

PATIENT
  Sex: Male
  Weight: 80.2 kg

DRUGS (1)
  1. LUMIZYME [Suspect]
     Active Substance: ALGLUCOSIDASE ALFA
     Indication: GLYCOGEN STORAGE DISEASE TYPE II
     Dosage: 3000 MG, QOW
     Route: 042
     Dates: start: 20151014

REACTIONS (2)
  - Weight decreased [Unknown]
  - Product dose omission issue [Unknown]
